FAERS Safety Report 5279538-3 (Version None)
Quarter: 2007Q1

REPORT INFORMATION
  Report Type: 
  Country: None (occurrence: None)
  Receive Date: 20070328
  Receipt Date: 20070316
  Transmission Date: 20070707
  Serious: Yes (Other)
  Sender: FDA-Public Use
  Company Number: FR-PFIZER INC-2007014041

PATIENT
  Age: 43 Year
  Sex: Female
  Weight: 45 kg

DRUGS (5)
  1. LYRICA [Suspect]
     Route: 048
     Dates: start: 20070205, end: 20070205
  2. RIVOTRIL [Interacting]
     Dosage: DAILY DOSE:4DROP
     Route: 048
     Dates: start: 20070205, end: 20070205
  3. EFFEXOR [Concomitant]
     Route: 048
  4. STILNOX [Concomitant]
     Route: 048
  5. LYSANXIA [Concomitant]

REACTIONS (4)
  - DRUG INTERACTION [None]
  - SOMNOLENCE [None]
  - TETANY [None]
  - VERTIGO [None]
